FAERS Safety Report 11700505 (Version 3)
Quarter: 2016Q1

REPORT INFORMATION
  Report Type: Spontaneous
  Country: US (occurrence: US)
  Receive Date: 20151105
  Receipt Date: 20160218
  Transmission Date: 20160525
  Serious: Yes (Hospitalization, Other)
  Sender: FDA-Public Use
  Company Number: US-ACTAVIS-2015-23724

PATIENT
  Age: 30 Year
  Sex: Male

DRUGS (8)
  1. LABETALOL [Suspect]
     Active Substance: LABETALOL\LABETALOL HYDROCHLORIDE
     Dosage: 2.2 G, TOTAL
     Route: 048
  2. METOPROLOL (WATSON LABORATORIES) [Suspect]
     Active Substance: METOPROLOL
     Indication: BLOOD PRESSURE MANAGEMENT
     Dosage: 1.3 G, TOTAL
     Route: 048
  3. METOPROLOL (WATSON LABORATORIES) [Suspect]
     Active Substance: METOPROLOL
     Dosage: 1.3 G, TOTAL
     Route: 042
  4. ESMOLOL [Suspect]
     Active Substance: ESMOLOL HYDROCHLORIDE
     Indication: BLOOD PRESSURE MANAGEMENT
     Dosage: 300 ?G/KG/MIN
     Route: 042
  5. DILTIAZEM [Concomitant]
     Active Substance: DILTIAZEM
     Indication: BLOOD PRESSURE MANAGEMENT
     Dosage: UNK
     Route: 042
  6. NITROPRUSSIDE [Concomitant]
     Active Substance: NITROPRUSSIDE
     Indication: BLOOD PRESSURE MANAGEMENT
     Dosage: UNK
     Route: 042
  7. CLONIDINE. [Concomitant]
     Active Substance: CLONIDINE
     Indication: BLOOD PRESSURE MANAGEMENT
     Dosage: UNK
     Route: 048
  8. LABETALOL [Suspect]
     Active Substance: LABETALOL\LABETALOL HYDROCHLORIDE
     Indication: BLOOD PRESSURE MANAGEMENT
     Dosage: 2.2 G, TOTAL
     Route: 042

REACTIONS (2)
  - Overdose [Recovered/Resolved]
  - Cardiomyopathy [Recovered/Resolved]
